FAERS Safety Report 13931807 (Version 2)
Quarter: 2017Q3

REPORT INFORMATION
  Report Type: Report from Study
  Country: None (occurrence: CR)
  Receive Date: 20170904
  Receipt Date: 20170929
  Transmission Date: 20171127
  Serious: Yes (Hospitalization, Other)
  Sender: FDA-Public Use
  Company Number: CR-ABBVIE-17K-039-2089420-00

PATIENT
  Sex: Male

DRUGS (2)
  1. HUMIRA [Suspect]
     Active Substance: ADALIMUMAB
     Route: 058
  2. HUMIRA [Suspect]
     Active Substance: ADALIMUMAB
     Indication: ANKYLOSING SPONDYLITIS
     Route: 058
     Dates: start: 20120707

REACTIONS (12)
  - Incision site swelling [Not Recovered/Not Resolved]
  - Renal failure [Not Recovered/Not Resolved]
  - Haematochezia [Not Recovered/Not Resolved]
  - Insomnia [Recovering/Resolving]
  - Abdominal distension [Not Recovered/Not Resolved]
  - Abdominal pain [Not Recovered/Not Resolved]
  - Procedural pain [Recovering/Resolving]
  - Renal impairment [Recovering/Resolving]
  - Abdominal rigidity [Not Recovered/Not Resolved]
  - Cholelithiasis [Recovered/Resolved]
  - Pneumonia [Not Recovered/Not Resolved]
  - Abdominal wound dehiscence [Not Recovered/Not Resolved]

NARRATIVE: CASE EVENT DATE: 2017
